FAERS Safety Report 14056249 (Version 3)
Quarter: 2018Q4

REPORT INFORMATION
  Report Type: Report from Study
  Country: IT (occurrence: IT)
  Receive Date: 20171006
  Receipt Date: 20181009
  Transmission Date: 20190204
  Serious: Yes (Other)
  Sender: FDA-Public Use
  Company Number: PHHY2017IT115247

PATIENT
  Age: 40 Year
  Sex: Female

DRUGS (1)
  1. SIGNIFOR [Suspect]
     Active Substance: PASIREOTIDE
     Indication: PITUITARY-DEPENDENT CUSHING^S SYNDROME
     Dosage: 1.2 MG, BID (AS REPORTED DIE)
     Route: 058
     Dates: start: 20170130

REACTIONS (3)
  - Diabetes mellitus [Not Recovered/Not Resolved]
  - Cholelithiasis [Unknown]
  - Hypertriglyceridaemia [Unknown]

NARRATIVE: CASE EVENT DATE: 20170222
